FAERS Safety Report 12560524 (Version 2)
Quarter: 2016Q3

REPORT INFORMATION
  Report Type: Report from Study
  Country: US (occurrence: US)
  Receive Date: 20160715
  Receipt Date: 20160721
  Transmission Date: 20161109
  Serious: No
  Sender: FDA-Public Use
  Company Number: US-AMGEN-USASL2016090262

PATIENT
  Age: 54 Year
  Sex: Female

DRUGS (1)
  1. ENBREL [Suspect]
     Active Substance: ETANERCEPT
     Indication: RHEUMATOID ARTHRITIS
     Dosage: 50 MG, QWK
     Route: 065
     Dates: start: 20141021

REACTIONS (7)
  - Gastrointestinal disorder [Not Recovered/Not Resolved]
  - Injection site bruising [Unknown]
  - Injection site erythema [Unknown]
  - Eating disorder [Unknown]
  - Injection site pain [Unknown]
  - Injection site vesicles [Unknown]
  - Injection site pruritus [Unknown]

NARRATIVE: CASE EVENT DATE: 2016
